FAERS Safety Report 12435374 (Version 1)
Quarter: 2016Q2

REPORT INFORMATION
  Report Type: Spontaneous
  Country: US (occurrence: US)
  Receive Date: 20160603
  Receipt Date: 20160603
  Transmission Date: 20160815
  Serious: No
  Sender: FDA-Public Use
  Company Number: US-ROCHE-1575796

PATIENT
  Sex: Female

DRUGS (2)
  1. XELODA [Suspect]
     Active Substance: CAPECITABINE
     Dosage: 7 DAYS ON 7 OFF
     Route: 048
     Dates: start: 20140627
  2. XELODA [Suspect]
     Active Substance: CAPECITABINE
     Indication: NEOPLASM MALIGNANT
     Route: 048
     Dates: start: 20140627

REACTIONS (4)
  - Drug dose omission [Unknown]
  - Tenderness [Unknown]
  - Skin exfoliation [Unknown]
  - Hypoaesthesia [Unknown]
